FAERS Safety Report 7291216-8 (Version None)
Quarter: 2011Q1

REPORT INFORMATION
  Report Type: 
  Country: None (occurrence: None)
  Receive Date: 20110214
  Receipt Date: 20110204
  Transmission Date: 20110831
  Serious: Yes (Hospitalization)
  Sender: FDA-Public Use
  Company Number: BR-AMGEN-BRASP2010001054

PATIENT
  Age: 49 Year
  Sex: Female
  Weight: 63 kg

DRUGS (8)
  1. PAROXETINE [Concomitant]
     Dosage: 20 MG/TABLET HALF TABLET
     Dates: start: 20100701
  2. TYLENOL [Concomitant]
     Indication: PAIN
     Dosage: 75 MG
  3. ENBREL [Suspect]
     Indication: PSORIATIC ARTHROPATHY
     Route: 058
     Dates: start: 20070710
  4. PAMELOR [Concomitant]
     Indication: DEPRESSION
     Dosage: 75 MG
  5. CYCLOBENZAPRINE HYDROCHLORIDE [Concomitant]
     Indication: PAIN
  6. PAROXETINE [Concomitant]
     Indication: DEPRESSION
     Dosage: 20 MG/TABLET HALF TABLET
     Dates: end: 20090213
  7. RISEDRONATE [Concomitant]
     Dosage: 35 MG
  8. CYCLOBENZAPRINE HYDROCHLORIDE [Concomitant]
     Indication: PSORIATIC ARTHROPATHY
     Dosage: 10 MG

REACTIONS (3)
  - KIDNEY INFECTION [None]
  - MENINGITIS [None]
  - COMA [None]
